FAERS Safety Report 4334372-3 (Version None)
Quarter: 2004Q1

REPORT INFORMATION
  Report Type: 
  Country: None (occurrence: None)
  Receive Date: 20040326
  Receipt Date: 20031202
  Transmission Date: 20041129
  Serious: No
  Sender: FDA-Public Use
  Company Number: US-JNJFOC-20031200913

PATIENT
  Age: 82 Year
  Sex: Male

DRUGS (1)
  1. REMINAYL (GALANTAMINE) TABLETS [Suspect]
     Indication: DEMENTIA ALZHEIMER'S TYPE
     Dosage: SEE IMAGE
     Route: 048

REACTIONS (1)
  - SEDATION [None]
